FAERS Safety Report 8550368 (Version 4)
Quarter: 2013Q4

REPORT INFORMATION
  Report Type: Spontaneous
  Country: PT (occurrence: PT)
  Receive Date: 20120507
  Receipt Date: 20131010
  Transmission Date: 20140711
  Serious: Yes (Death, Hospitalization, Other)
  Sender: FDA-Public Use
  Company Number: PT-AMGEN-PRTSP2012027591

PATIENT
  Age: 33 Year
  Sex: Female
  Weight: 74.97 kg

DRUGS (2)
  1. NPLATE [Suspect]
     Indication: PRODUCT USED FOR UNKNOWN INDICATION
     Dosage: UNK UNK, QWK
     Route: 058
     Dates: start: 20120305, end: 20120416
  2. GABAPENTIN [Concomitant]
     Dosage: 300 MG, QD
     Route: 048
     Dates: start: 20111217

REACTIONS (7)
  - Haemorrhage intracranial [Fatal]
  - Gingival bleeding [Unknown]
  - Epistaxis [Unknown]
  - Urinary retention [Unknown]
  - Faecal incontinence [Unknown]
  - Thrombocytopenia [Unknown]
  - Neuropathy peripheral [Recovering/Resolving]
